FAERS Safety Report 6381100-6 (Version None)
Quarter: 2009Q3

REPORT INFORMATION
  Report Type: 
  Country: None (occurrence: None)
  Receive Date: 20090924
  Receipt Date: 20090818
  Transmission Date: 20100115
  Serious: Yes (Hospitalization)
  Sender: FDA-Public Use
  Company Number: 230081J09BRA

PATIENT
  Age: 31 Year
  Sex: Female

DRUGS (4)
  1. REBIF [Suspect]
     Indication: MULTIPLE SCLEROSIS
     Dosage: 44 MCG, 3 IN 1 WEEKS
     Dates: start: 20061009
  2. ALPRAZOLAM [Concomitant]
  3. SERTRALINE HCL [Concomitant]
  4. AMITRIPTYLINE HCL [Concomitant]

REACTIONS (3)
  - DYSPNOEA [None]
  - EMOTIONAL DISORDER [None]
  - NERVOUSNESS [None]
